FAERS Safety Report 21491038 (Version 3)
Quarter: 2023Q1

REPORT INFORMATION
  Report Type: Report from Study
  Country: US (occurrence: US)
  Receive Date: 20221021
  Receipt Date: 20230217
  Transmission Date: 20230418
  Serious: Yes (Other)
  Sender: FDA-Public Use
  Company Number: US-ALXN-A202212780

PATIENT
  Sex: Male

DRUGS (1)
  1. STRENSIQ [Suspect]
     Active Substance: ASFOTASE ALFA
     Indication: Hypophosphatasia
     Dosage: UNK
     Route: 065

REACTIONS (9)
  - Seizure like phenomena [Unknown]
  - Malaise [Unknown]
  - Gallbladder operation [Unknown]
  - Chills [Unknown]
  - Feeling of body temperature change [Unknown]
  - Suspected COVID-19 [Unknown]
  - Back pain [Unknown]
  - Tooth infection [Unknown]
  - Influenza [Unknown]
